FAERS Safety Report 6957558-8 (Version None)
Quarter: 2010Q3

REPORT INFORMATION
  Report Type: 
  Country: None (occurrence: None)
  Receive Date: 20100831
  Receipt Date: 20100816
  Transmission Date: 20110219
  Serious: Yes (Other)
  Sender: FDA-Public Use
  Company Number: PHHY2010JP25449

PATIENT
  Sex: Male
  Weight: 75 kg

DRUGS (2)
  1. DIOVAN [Suspect]
     Indication: HYPERTENSION
     Dosage: 80 MG, QD
     Route: 048
     Dates: start: 20100408, end: 20100416
  2. CORTRIL [Concomitant]
     Dosage: 10 MG, BID
     Dates: start: 20100604

REACTIONS (17)
  - CONDITION AGGRAVATED [None]
  - DECREASED APPETITE [None]
  - DUODENAL ULCER [None]
  - DYSPNOEA [None]
  - EYELID OEDEMA [None]
  - FATIGUE [None]
  - HYPOPITUITARISM [None]
  - LYMPHOCYTE COUNT INCREASED [None]
  - MALAISE [None]
  - MUSCULAR WEAKNESS [None]
  - MYALGIA [None]
  - NEUTROPHIL COUNT DECREASED [None]
  - OEDEMA PERIPHERAL [None]
  - PLATELET COUNT DECREASED [None]
  - PULMONARY OEDEMA [None]
  - WEIGHT DECREASED [None]
  - WHITE BLOOD CELL COUNT DECREASED [None]
